FAERS Safety Report 8530421-7 (Version None)
Quarter: 2012Q3

REPORT INFORMATION
  Report Type: 
  Country: None (occurrence: None)
  Receive Date: 20120711
  Receipt Date: 20120626
  Transmission Date: 20120928
  Serious: Yes (Hospitalization)
  Sender: FDA-Public Use
  Company Number: 2012050120

PATIENT
  Sex: Male
  Weight: 71.2147 kg

DRUGS (15)
  1. HYDROXY B12 (HYDROXOCOBALAMIN) [Concomitant]
  2. FELBATOL [Suspect]
     Indication: MYOCLONIC EPILEPSY
     Dosage: SEE IMAGE
     Route: 048
     Dates: start: 20030501
  3. FELBATOL [Suspect]
     Indication: MYOCLONIC EPILEPSY
     Dosage: SEE IMAGE
     Route: 048
     Dates: start: 20040101
  4. FELBATOL [Suspect]
     Indication: MYOCLONIC EPILEPSY
     Dosage: SEE IMAGE
     Route: 048
     Dates: start: 20050601
  5. FELBATOL [Suspect]
     Indication: MYOCLONIC EPILEPSY
     Dosage: SEE IMAGE
     Route: 048
     Dates: start: 20060501
  6. FELBATOL [Suspect]
     Indication: MYOCLONIC EPILEPSY
     Dosage: SEE IMAGE
     Route: 048
     Dates: start: 20080101
  7. FELBATOL [Suspect]
     Indication: MYOCLONIC EPILEPSY
     Dosage: SEE IMAGE
     Route: 048
     Dates: start: 19900101
  8. FELBATOL [Suspect]
     Indication: MYOCLONIC EPILEPSY
     Dosage: SEE IMAGE
     Route: 048
     Dates: start: 20031001
  9. VIMPAT [Concomitant]
  10. BANZEL (RUFINAMIDE) [Concomitant]
  11. KEPPRA [Concomitant]
  12. METHYL B12 (METHYLCOBALAMIN) [Concomitant]
  13. ZONEGRAN [Concomitant]
  14. MELATONIN (MELATONIN) [Concomitant]
  15. AMINO ACIDS PLUS GLUTATHIONE (GLUTATHIONE, AMINO ACIDS) [Concomitant]

REACTIONS (9)
  - WHITE BLOOD CELL COUNT DECREASED [None]
  - EATING DISORDER [None]
  - GASTROINTESTINAL DISORDER [None]
  - VOMITING [None]
  - GRAND MAL CONVULSION [None]
  - PYREXIA [None]
  - CONSTIPATION [None]
  - WEIGHT DECREASED [None]
  - GASTROOESOPHAGEAL REFLUX DISEASE [None]
